FAERS Safety Report 24146111 (Version 1)
Quarter: 2024Q3

REPORT INFORMATION
  Report Type: Spontaneous
  Country: US (occurrence: US)
  Receive Date: 20240729
  Receipt Date: 20240729
  Transmission Date: 20241017
  Serious: No
  Sender: BIONPHARMA
  Company Number: US-Bion-013549

PATIENT
  Age: 83 Year
  Sex: Female
  Weight: 97.52 kg

DRUGS (1)
  1. DOFETILIDE [Suspect]
     Active Substance: DOFETILIDE
     Indication: Palpitations
     Dosage: 125MCG
     Route: 048

REACTIONS (2)
  - Weight decreased [Unknown]
  - Diarrhoea [Recovering/Resolving]
